FAERS Safety Report 9310778 (Version 2)
Quarter: 2013Q3

REPORT INFORMATION
  Report Type: Spontaneous
  Country: US (occurrence: US)
  Receive Date: 20130528
  Receipt Date: 20130731
  Transmission Date: 20140515
  Serious: No
  Sender: FDA-Public Use
  Company Number: US-009507513-1305USA012635

PATIENT
  Age: 15 Year
  Sex: Female
  Weight: 47.62 kg

DRUGS (1)
  1. IMPLANON [Suspect]
     Indication: CONTRACEPTION
     Dosage: 1 ROD UP TO 3 YEARS
     Route: 059
     Dates: start: 20100629

REACTIONS (6)
  - Device breakage [Not Recovered/Not Resolved]
  - Unintended pregnancy [Unknown]
  - Amenorrhoea [Recovered/Resolved]
  - Device kink [Unknown]
  - Implant site pain [Unknown]
  - Implant site pruritus [Unknown]
